FAERS Safety Report 20798913 (Version 1)
Quarter: 2022Q2

REPORT INFORMATION
  Report Type: Report from Study
  Country: DE (occurrence: DE)
  Receive Date: 20220507
  Receipt Date: 20220507
  Transmission Date: 20220720
  Serious: Yes (Other)
  Sender: FDA-Public Use
  Company Number: DE-TEVA-2022-DE-2033633

PATIENT
  Age: 46 Year
  Sex: Female

DRUGS (2)
  1. COPAXONE [Interacting]
     Active Substance: GLATIRAMER ACETATE
     Indication: Multiple sclerosis
     Dates: start: 20220101
  2. ACETAMINOPHEN\ASPIRIN\CAFFEINE [Interacting]
     Active Substance: ACETAMINOPHEN\ASPIRIN\CAFFEINE
     Route: 065
     Dates: start: 20220425

REACTIONS (8)
  - COVID-19 [Unknown]
  - Headache [Unknown]
  - Dysphonia [Recovered/Resolved]
  - Speech disorder [Recovered/Resolved]
  - Feeling cold [Recovered/Resolved]
  - Tremor [Recovered/Resolved]
  - Gait disturbance [Recovered/Resolved]
  - Drug interaction [Unknown]

NARRATIVE: CASE EVENT DATE: 20220401
